FAERS Safety Report 18657597 (Version 6)
Quarter: 2021Q1

REPORT INFORMATION
  Report Type: Spontaneous
  Country: US (occurrence: US)
  Receive Date: 20201224
  Receipt Date: 20210129
  Transmission Date: 20210419
  Serious: No
  Sender: FDA-Public Use
  Company Number: US-AMGEN-USASP2020209016

PATIENT
  Age: 62 Year
  Sex: Male
  Weight: 90.4 kg

DRUGS (2)
  1. NEULASTA [Suspect]
     Active Substance: PEGFILGRASTIM
     Indication: NEUTROPENIA
     Dosage: 6 MICROGRAM
     Route: 065
     Dates: start: 20201216
  2. NEULASTA [Suspect]
     Active Substance: PEGFILGRASTIM
     Dosage: 6 MICROGRAM
     Route: 065
     Dates: start: 20201216

REACTIONS (2)
  - Unintentional medical device removal [Unknown]
  - Device malfunction [Unknown]

NARRATIVE: CASE EVENT DATE: 20201217
